FAERS Safety Report 5206035-3 (Version None)
Quarter: 2007Q1

REPORT INFORMATION
  Report Type: 
  Country: None (occurrence: None)
  Receive Date: 20070111
  Receipt Date: 20070101
  Transmission Date: 20070707
  Serious: Yes (Disabling)
  Sender: FDA-Public Use
  Company Number: PHBS2007IT00544

PATIENT
  Age: 61 Year
  Sex: Female

DRUGS (5)
  1. ZOMETA [Suspect]
     Indication: METASTASES TO BONE
     Dosage: 4 MG, MONTHLY
     Route: 042
     Dates: start: 20040123, end: 20050728
  2. GEMCITABINE [Concomitant]
     Route: 065
     Dates: start: 20040101, end: 20040601
  3. ACETAMINOPHEN [Concomitant]
     Route: 065
  4. TACHIDOL [Concomitant]
     Route: 065
  5. PLATINUM [Concomitant]
     Route: 065
     Dates: start: 20040101, end: 20040601

REACTIONS (3)
  - DENTAL TREATMENT [None]
  - HYPERBARIC OXYGEN THERAPY [None]
  - OSTEONECROSIS [None]
